FAERS Safety Report 10642419 (Version 1)
Quarter: 2014Q4

REPORT INFORMATION
  Report Type: Spontaneous
  Country: US (occurrence: None)
  Receive Date: 20141121
  Receipt Date: 20141121
  Transmission Date: 20150529
  Serious: No
  Sender: FDA-Public Use
  Company Number: 163-10004-14074663

PATIENT
  Age: 57 Year
  Sex: Female
  Weight: 81.65 kg

DRUGS (14)
  1. OTEZLA [Suspect]
     Active Substance: APREMILAST
     Indication: PSORIATIC ARTHROPATHY
     Route: 048
     Dates: start: 20140716
  2. BUTRANS (DUPRENORPHINE) [Concomitant]
  3. KLOR-COM (POTASSIUM CHLORIDE) [Concomitant]
  4. TOPAMAX [Concomitant]
     Active Substance: TOPIRAMATE
  5. PERCOCET (OXYCOCET) [Concomitant]
  6. IMITREX [Concomitant]
     Active Substance: SUMATRIPTAN\SUMATRIPTAN SUCCINATE
  7. NOVOLOG [Concomitant]
     Active Substance: INSULIN ASPART
  8. FUROSEMIDE (FUROSEMIDE) [Concomitant]
     Active Substance: FUROSEMIDE
  9. NEXIUM [Concomitant]
     Active Substance: ESOMEPRAZOLE MAGNESIUM
  10. WELLBUTRIN [Concomitant]
     Active Substance: BUPROPION HYDROCHLORIDE
  11. METHOCARBAMOL (METHOCARBAMOL) [Concomitant]
  12. HYDROXYCHLOROQUINE (HYDROXYCHLOROQUINE) [Concomitant]
  13. REQUIP [Concomitant]
     Active Substance: ROPINIROLE HYDROCHLORIDE
  14. ZORVOLEX (DICLOFENAC) [Concomitant]

REACTIONS (4)
  - Headache [None]
  - Nausea [None]
  - Abdominal discomfort [None]
  - Vomiting [None]

NARRATIVE: CASE EVENT DATE: 20140723
